FAERS Safety Report 7551182-4 (Version None)
Quarter: 2011Q2

REPORT INFORMATION
  Report Type: 
  Country: None (occurrence: None)
  Receive Date: 20110616
  Receipt Date: 20110601
  Transmission Date: 20111010
  Serious: Yes (Disabling, Other)
  Sender: FDA-Public Use
  Company Number: PHHY2011US48145

PATIENT
  Sex: Female

DRUGS (2)
  1. PROMETRIUM [Concomitant]
     Dosage: UNK
  2. VIVELLE-DOT [Suspect]
     Dosage: 0.1 MG, BIW
     Route: 062

REACTIONS (4)
  - FATIGUE [None]
  - PAIN [None]
  - FIBROMYALGIA [None]
  - FEELING OF DESPAIR [None]
